FAERS Safety Report 13126374 (Version 1)
Quarter: 2017Q1

REPORT INFORMATION
  Report Type: Spontaneous
  Country: US (occurrence: US)
  Receive Date: 20170118
  Receipt Date: 20170118
  Transmission Date: 20170428
  Serious: No
  Sender: FDA-Public Use
  Company Number: US-DEPOMED, INC.-US-2016DEP007458

PATIENT

DRUGS (2)
  1. NUCYNTA [Suspect]
     Active Substance: TAPENTADOL HYDROCHLORIDE
     Indication: BIOPSY
     Dosage: 0.5 DF, SINGLE
     Route: 048
     Dates: start: 20160302, end: 20160302
  2. AMOXICILLIN. [Concomitant]
     Active Substance: AMOXICILLIN
     Indication: BIOPSY
     Dosage: 400 MG, TID
     Route: 048
     Dates: start: 20160302

REACTIONS (1)
  - Palpitations [Recovered/Resolved]

NARRATIVE: CASE EVENT DATE: 20160302
